FAERS Safety Report 9388851 (Version 2)
Quarter: 2016Q1

REPORT INFORMATION
  Report Type: Spontaneous
  Country: DE (occurrence: DE)
  Receive Date: 20130708
  Receipt Date: 20160304
  Transmission Date: 20160526
  Serious: Yes (Death, Hospitalization, Other)
  Sender: FDA-Public Use
  Company Number: DE-MYLANLABS-2013S1014398

PATIENT

DRUGS (6)
  1. PREDNISOLONE. [Suspect]
     Active Substance: PREDNISOLONE
     Dosage: 0.5 MG/KG, UNK
  2. IMMUNOGLOBULIN I.V [Suspect]
     Active Substance: HUMAN IMMUNOGLOBULIN G
     Indication: METAPNEUMOVIRUS INFECTION
     Dosage: UNK
     Route: 042
  3. RIBAVIRIN. [Suspect]
     Active Substance: RIBAVIRIN
     Indication: METAPNEUMOVIRUS INFECTION
     Dosage: 7.5 MG/KG, TID
     Route: 042
  4. RIBAVIRIN. [Suspect]
     Active Substance: RIBAVIRIN
     Dosage: UNK
     Route: 048
  5. PREDNISOLONE. [Suspect]
     Active Substance: PREDNISOLONE
     Indication: IMMUNOSUPPRESSION
     Dosage: .2 MG/KG,QD
  6. PREDNISONE. [Concomitant]
     Active Substance: PREDNISONE
     Indication: IMMUNOSUPPRESSION
     Dosage: 0.2 MG/KG, UNK

REACTIONS (8)
  - Disease progression [Unknown]
  - Lung disorder [Fatal]
  - Metapneumovirus infection [Fatal]
  - Cough [Unknown]
  - Interstitial lung disease [Unknown]
  - Off label use [Unknown]
  - Respiratory failure [Fatal]
  - Hypercapnia [Unknown]
